FAERS Safety Report 16426049 (Version 1)
Quarter: 2019Q2

REPORT INFORMATION
  Report Type: Spontaneous
  Country: US (occurrence: US)
  Receive Date: 20190506
  Receipt Date: 20190506
  Transmission Date: 20190711
  Serious: No
  Sender: FDA-Public Use
  Company Number: None

PATIENT
  Age: 42 Year
  Sex: Male

DRUGS (1)
  1. TREMFYA [Suspect]
     Active Substance: GUSELKUMAB
     Dates: start: 201812, end: 201903

REACTIONS (2)
  - Influenza like illness [None]
  - Drug ineffective [None]

NARRATIVE: CASE EVENT DATE: 20190408
